FAERS Safety Report 7900669-0 (Version None)
Quarter: 2011Q4

REPORT INFORMATION
  Report Type: 
  Country: None (occurrence: None)
  Receive Date: 20111108
  Receipt Date: 20111102
  Transmission Date: 20120403
  Serious: Yes (Other)
  Sender: FDA-Public Use
  Company Number: FR-BRISTOL-MYERS SQUIBB COMPANY-15431927

PATIENT
  Age: 26 Year
  Sex: Female

DRUGS (4)
  1. TERCIAN [Suspect]
  2. ABILIFY [Suspect]
     Indication: SCHIZOPHRENIA
     Dosage: FOR MORE THAN 1 YEAR
     Route: 048
  3. BENZODIAZEPINES [Suspect]
  4. CITALOPRAM HYDROBROMIDE [Suspect]
     Route: 048

REACTIONS (3)
  - PREGNANCY [None]
  - MATERNAL DRUGS AFFECTING FOETUS [None]
  - ABORTION INDUCED [None]
